FAERS Safety Report 5045332-1 (Version None)
Quarter: 2006Q3

REPORT INFORMATION
  Report Type: 
  Country: None (occurrence: None)
  Receive Date: 20060707
  Receipt Date: 20051114
  Transmission Date: 20061208
  Serious: No
  Sender: FDA-Public Use
  Company Number: US-GLAXOSMITHKLINE-A0582158A

PATIENT
  Age: 68 Year
  Sex: Female

DRUGS (7)
  1. LOTRONEX [Suspect]
     Indication: IRRITABLE BOWEL SYNDROME
     Dosage: 1TAB PER DAY
     Route: 048
  2. GLUCOPHAGE [Suspect]
     Indication: DRUG USE FOR UNKNOWN INDICATION
     Route: 065
  3. DIAVAN [Concomitant]
  4. NORVASC [Concomitant]
  5. AMARYL [Concomitant]
  6. MEGACE [Concomitant]
  7. POTASSIUM SUPPLEMENT [Concomitant]

REACTIONS (1)
  - DRUG INEFFECTIVE [None]
